FAERS Safety Report 5441143-3 (Version None)
Quarter: 2007Q3

REPORT INFORMATION
  Report Type: 
  Country: None (occurrence: None)
  Receive Date: 20070831
  Receipt Date: 20070820
  Transmission Date: 20080115
  Serious: Yes (Hospitalization, Other)
  Sender: FDA-Public Use
  Company Number: US-PFIZER INC-2007068839

PATIENT
  Sex: Male
  Weight: 70.3 kg

DRUGS (1)
  1. CELEBREX [Suspect]
     Indication: ARTHRITIS
     Dates: start: 20030128, end: 20040930

REACTIONS (5)
  - BIPOLAR DISORDER [None]
  - DEEP VEIN THROMBOSIS [None]
  - EPISTAXIS [None]
  - HYPERTENSION [None]
  - SYNCOPE [None]
